FAERS Safety Report 9924460 (Version 1)
Quarter: 2014Q1

REPORT INFORMATION
  Report Type: Spontaneous
  Country: US (occurrence: None)
  Receive Date: 20140224
  Receipt Date: 20140224
  Transmission Date: 20141002
  Serious: Yes (Hospitalization, Disabling, Other)
  Sender: FDA-Public Use
  Company Number: None

PATIENT
  Age: 42 Year
  Sex: Female
  Weight: 79.38 kg

DRUGS (1)
  1. ORTHO-CYCLEN [Suspect]
     Indication: ENDOMETRIOSIS
     Dosage: 1 PILL ONCE DAILY
     Route: 048

REACTIONS (3)
  - Cholelithiasis [None]
  - Portal vein thrombosis [None]
  - Pain [None]
